FAERS Safety Report 8452008-7 (Version None)
Quarter: 2012Q2

REPORT INFORMATION
  Report Type: 
  Country: None (occurrence: None)
  Receive Date: 20120620
  Receipt Date: 20120613
  Transmission Date: 20120825
  Serious: Yes (Death, Hospitalization)
  Sender: FDA-Public Use
  Company Number: JP-BRISTOL-MYERS SQUIBB COMPANY-16671422

PATIENT
  Age: 68 Year
  Sex: Male

DRUGS (8)
  1. RISEDRONATE SODIUM [Concomitant]
  2. BUCILLAMINE [Concomitant]
     Indication: RHEUMATOID ARTHRITIS
  3. LORCAM [Concomitant]
     Indication: RHEUMATOID ARTHRITIS
  4. VOLTAREN [Concomitant]
     Indication: RHEUMATOID ARTHRITIS
  5. ORENCIA [Suspect]
     Indication: RHEUMATOID ARTHRITIS
     Route: 041
     Dates: start: 20110601
  6. PREDNISOLONE [Concomitant]
     Indication: RHEUMATOID ARTHRITIS
  7. SELBEX [Concomitant]
     Indication: PROPHYLAXIS
  8. LOXONIN [Concomitant]
     Indication: RHEUMATOID ARTHRITIS

REACTIONS (1)
  - CAROTID ANEURYSM RUPTURE [None]
